FAERS Safety Report 8011035-4 (Version None)
Quarter: 2011Q4

REPORT INFORMATION
  Report Type: 
  Country: None (occurrence: None)
  Receive Date: 20111228
  Receipt Date: 20111219
  Transmission Date: 20120403
  Serious: Yes (Life-Threatening, Hospitalization, Other)
  Sender: FDA-Public Use
  Company Number: US-ELI_LILLY_AND_COMPANY-US201111007238

PATIENT
  Age: 57 Year
  Sex: Female
  Weight: 55 kg

DRUGS (6)
  1. NALOXONE [Concomitant]
     Indication: OVERDOSE
     Dosage: 0.4 MG, UNK
     Route: 042
  2. CYMBALTA [Suspect]
     Dosage: 60 MG, BID
     Route: 048
  3. BUPROPION HCL [Concomitant]
     Indication: DEPRESSION
     Dosage: 150 MG, TID
  4. FENTANYL [Concomitant]
     Indication: PAIN
     Dosage: 150 DF, UNK
  5. OXYCODONE HCL [Concomitant]
     Indication: PAIN
     Dosage: 30 MG, TID
  6. NALOXONE [Concomitant]
     Dosage: 0.4 MG, UNK
     Route: 042

REACTIONS (6)
  - NEUROLEPTIC MALIGNANT SYNDROME [None]
  - MULTIPLE DRUG OVERDOSE INTENTIONAL [None]
  - MIOSIS [None]
  - FOAMING AT MOUTH [None]
  - LOSS OF CONSCIOUSNESS [None]
  - DRUG INTERACTION [None]
